FAERS Safety Report 10458758 (Version 1)
Quarter: 2014Q3

REPORT INFORMATION
  Report Type: Spontaneous
  Country: US (occurrence: US)
  Receive Date: 20140917
  Receipt Date: 20140917
  Transmission Date: 20150326
  Serious: Yes (Hospitalization)
  Sender: FDA-Public Use
  Company Number: US-ROXANE LABORATORIES, INC.-2014-RO-01380RO

PATIENT
  Age: 67 Year
  Sex: Male

DRUGS (1)
  1. DONEPEZIL HYDROCHLORIDE. [Suspect]
     Active Substance: DONEPEZIL HYDROCHLORIDE
     Indication: DEMENTIA
     Route: 065

REACTIONS (4)
  - Intentional overdose [Recovered/Resolved]
  - Ileus [Unknown]
  - Bradycardia [Recovered/Resolved]
  - Delirium [Unknown]
